FAERS Safety Report 10042333 (Version 1)
Quarter: 2014Q1

REPORT INFORMATION
  Report Type: Report from Study
  Country: JP (occurrence: JP)
  Receive Date: 20140327
  Receipt Date: 20140327
  Transmission Date: 20141002
  Serious: Yes (Hospitalization)
  Sender: FDA-Public Use
  Company Number: JP-AMGEN-JPNCT2013092427

PATIENT
  Age: 66 Year
  Sex: Female
  Weight: 86 kg

DRUGS (19)
  1. DARBEPOETIN ALFA [Suspect]
     Indication: NEPHROGENIC ANAEMIA
     Dosage: 60 MUG, Q4WK
     Route: 058
     Dates: start: 20110201, end: 20110301
  2. DIOVAN [Concomitant]
     Dosage: UNK
     Route: 048
  3. RENIVACE [Concomitant]
     Dosage: UNK
     Route: 048
  4. CARDENALIN [Concomitant]
     Dosage: UNK
     Route: 048
  5. ALDACTONE A [Concomitant]
     Dosage: UNK
     Route: 048
  6. LASIX                              /00032601/ [Concomitant]
     Dosage: UNK
     Route: 048
  7. ALFAROL [Concomitant]
     Dosage: UNK
     Route: 048
  8. ADALAT [Concomitant]
     Dosage: UNK
     Route: 048
  9. LIPITOR [Concomitant]
     Dosage: UNK
     Route: 048
  10. ZYLORIC [Concomitant]
     Dosage: UNK
     Route: 048
  11. ALESION [Concomitant]
     Dosage: UNK
     Route: 048
  12. DIART [Concomitant]
     Dosage: UNK
     Route: 048
  13. SEIBULE [Concomitant]
     Dosage: UNK
     Route: 048
  14. KINEDAK [Concomitant]
     Dosage: UNK
     Route: 048
  15. NOVORAPID [Concomitant]
     Dosage: UNK
     Route: 065
  16. HUMALOG [Concomitant]
     Dosage: UNK
     Route: 065
  17. NOVORAPID MIX [Concomitant]
     Dosage: UNK
     Route: 065
     Dates: end: 20110818
  18. VICTOZA [Concomitant]
     Dosage: UNK
     Route: 065
     Dates: start: 20110819
  19. PRECIPITATED CALCIUM CARBONATE [Concomitant]
     Dosage: UNK
     Route: 048

REACTIONS (3)
  - Diabetes mellitus [Recovering/Resolving]
  - Iron deficiency anaemia [Recovered/Resolved]
  - Hyperphosphataemia [Recovering/Resolving]
